FAERS Safety Report 14489722 (Version 1)
Quarter: 2018Q1

REPORT INFORMATION
  Report Type: Spontaneous
  Country: AR (occurrence: AR)
  Receive Date: 20180205
  Receipt Date: 20180205
  Transmission Date: 20180509
  Serious: Yes (Hospitalization, Other)
  Sender: FDA-Public Use
  Company Number: AR-AMGEN-ARGSP2018014810

PATIENT
  Age: 55 Year
  Sex: Female

DRUGS (1)
  1. ENBREL [Suspect]
     Active Substance: ETANERCEPT
     Indication: PRODUCT USED FOR UNKNOWN INDICATION
     Dosage: UNK
     Route: 065

REACTIONS (12)
  - Fall [Unknown]
  - Malaise [Unknown]
  - Eating disorder [Unknown]
  - Abdominal pain upper [Unknown]
  - Syncope [Unknown]
  - Asthenia [Unknown]
  - Vomiting [Unknown]
  - Hypokalaemia [Unknown]
  - Gastritis [Unknown]
  - Gait disturbance [Unknown]
  - Anaemia [Unknown]
  - Memory impairment [Unknown]
